FAERS Safety Report 5407096-9 (Version None)
Quarter: 2007Q3

REPORT INFORMATION
  Report Type: 
  Country: None (occurrence: None)
  Receive Date: 20070807
  Receipt Date: 20070727
  Transmission Date: 20080115
  Serious: Yes (Life-Threatening)
  Sender: FDA-Public Use
  Company Number: FR-ASTRAZENECA-2006CG01821

PATIENT
  Age: 17 Year
  Sex: Female
  Weight: 55 kg

DRUGS (5)
  1. DIPRIVAN [Suspect]
     Route: 042
     Dates: start: 20061024
  2. DIPRIVAN [Suspect]
     Route: 042
  3. DIPRIVAN [Suspect]
     Route: 042
     Dates: end: 20061027
  4. MIDAZOLAM [Concomitant]
     Route: 042
     Dates: start: 20061024
  5. ACYCLOVIR [Concomitant]

REACTIONS (7)
  - CARDIOMYOPATHY [None]
  - METABOLIC ACIDOSIS [None]
  - OFF LABEL USE [None]
  - PROPOFOL INFUSION SYNDROME [None]
  - RENAL FAILURE ACUTE [None]
  - RHABDOMYOLYSIS [None]
  - SHOCK [None]
